FAERS Safety Report 24528814 (Version 1)
Quarter: 2024Q4

REPORT INFORMATION
  Report Type: Spontaneous
  Country: US (occurrence: None)
  Receive Date: 20241018
  Receipt Date: 20241018
  Transmission Date: 20250115
  Serious: Yes (Hospitalization)
  Sender: Public
  Company Number: None

PATIENT
  Sex: Male

DRUGS (11)
  1. VELTASSA [Suspect]
     Active Substance: PATIROMER
     Dosage: FREQUENCY : DAILY;?FREQ: DISSOVE CONTENTS OF 1 PACKAGE INTO 1/3 CUP OF WATER AND DRINK FULL AMOUNT O
     Route: 048
     Dates: start: 20170125
  2. MINERALS\VITAMINS [Concomitant]
     Active Substance: MINERALS\VITAMINS
  3. CLOPIGDOGREL [Concomitant]
  4. VITAMIN D3 [Concomitant]
     Active Substance: CHOLECALCIFEROL
  5. EDARBI [Concomitant]
     Active Substance: AZILSARTAN KAMEDOXOMIL
  6. FOLIC ACID [Concomitant]
     Active Substance: FOLIC ACID
  7. FUROSEMIDE [Concomitant]
     Active Substance: FUROSEMIDE
  8. GABAPENTIN [Concomitant]
     Active Substance: GABAPENTIN
  9. IRON [Concomitant]
     Active Substance: IRON
  10. LEVEMIR [Concomitant]
     Active Substance: INSULIN DETEMIR
  11. PIOGLITAZONE [Concomitant]
     Active Substance: PIOGLITAZONE

REACTIONS (3)
  - Renal disorder [None]
  - Dialysis [None]
  - Therapy interrupted [None]
